FAERS Safety Report 6396452-0 (Version None)
Quarter: 2009Q4

REPORT INFORMATION
  Report Type: 
  Country: None (occurrence: None)
  Receive Date: 20091012
  Receipt Date: 20091002
  Transmission Date: 20100525
  Serious: Yes (Hospitalization, Disabling, Other)
  Sender: FDA-Public Use
  Company Number: US-ROCHE-409452

PATIENT
  Sex: Male
  Weight: 54.4 kg

DRUGS (3)
  1. ACCUTANE [Suspect]
     Indication: ACNE
     Route: 065
     Dates: start: 19961003, end: 19961101
  2. ACCUTANE [Suspect]
     Route: 065
     Dates: start: 19961101, end: 19970818
  3. VALIUM [Suspect]
     Indication: DRUG USE FOR UNKNOWN INDICATION
     Route: 065
     Dates: start: 20041003, end: 20041003

REACTIONS (37)
  - ANAEMIA [None]
  - AUTOIMMUNE DISORDER [None]
  - CONVULSION [None]
  - CROHN'S DISEASE [None]
  - DEPRESSION [None]
  - GASTRITIS [None]
  - GASTROINTESTINAL DISORDER [None]
  - GASTROINTESTINAL HAEMORRHAGE [None]
  - HEPATIC FAILURE [None]
  - HEPATITIS C [None]
  - HOMICIDAL IDEATION [None]
  - ILEITIS [None]
  - INFLAMMATORY BOWEL DISEASE [None]
  - INTENTIONAL DRUG MISUSE [None]
  - INTESTINAL OBSTRUCTION [None]
  - INTUSSUSCEPTION [None]
  - LIGAMENT CALCIFICATION [None]
  - LOSS OF CONSCIOUSNESS [None]
  - MULTI-ORGAN DISORDER [None]
  - MUSCULOSKELETAL DISORDER [None]
  - NAUSEA [None]
  - NECK INJURY [None]
  - PANIC ATTACK [None]
  - PNEUMONIA [None]
  - POLYP [None]
  - PYODERMA GANGRENOSUM [None]
  - RECTAL HAEMORRHAGE [None]
  - RHEUMATIC FEVER [None]
  - RHEUMATOID ARTHRITIS [None]
  - SUBSTANCE ABUSE [None]
  - SUICIDAL BEHAVIOUR [None]
  - SUICIDAL IDEATION [None]
  - SUICIDE ATTEMPT [None]
  - TENDON CALCIFICATION [None]
  - TENDONITIS [None]
  - URETERIC OBSTRUCTION [None]
  - VOMITING [None]
